FAERS Safety Report 19104394 (Version 2)
Quarter: 2021Q2

REPORT INFORMATION
  Report Type: Report from Study
  Country: None (occurrence: US)
  Receive Date: 20210408
  Receipt Date: 20210414
  Transmission Date: 20210717
  Serious: Yes (Other)
  Sender: FDA-Public Use
  Company Number: US-ABBVIE-21K-163-3845749-00

PATIENT
  Age: 77 Year
  Sex: Male

DRUGS (2)
  1. DUOPA [Suspect]
     Active Substance: CARBIDOPA\LEVODOPA
  2. DUOPA [Suspect]
     Active Substance: CARBIDOPA\LEVODOPA
     Indication: PARKINSON^S DISEASE
     Route: 050
     Dates: start: 20170811

REACTIONS (13)
  - Stoma site discharge [Recovered/Resolved]
  - Fall [Recovered/Resolved]
  - Device breakage [Unknown]
  - Stoma site irritation [Unknown]
  - Stoma site pain [Unknown]
  - Head injury [Unknown]
  - Orthostatic hypotension [Unknown]
  - Medical device site scab [Unknown]
  - Skin mass [Unknown]
  - Contusion [Not Recovered/Not Resolved]
  - Stoma site erythema [Unknown]
  - Epistaxis [Not Recovered/Not Resolved]
  - Skin exfoliation [Unknown]

NARRATIVE: CASE EVENT DATE: 20210402
